FAERS Safety Report 20919948 (Version 2)
Quarter: 2022Q3

REPORT INFORMATION
  Report Type: Spontaneous
  Country: SE (occurrence: SE)
  Receive Date: 20220606
  Receipt Date: 20220801
  Transmission Date: 20221026
  Serious: Yes (Other)
  Sender: FDA-Public Use
  Company Number: SE-NOVARTISPH-NVSC2022SE123583

PATIENT

DRUGS (3)
  1. ROSUVASTATIN [Suspect]
     Active Substance: ROSUVASTATIN
     Indication: Product used for unknown indication
     Dosage: UNK
     Route: 065
     Dates: start: 20220317
  2. EZETIMIBE [Suspect]
     Active Substance: EZETIMIBE
     Indication: Product used for unknown indication
     Dosage: UNK
     Route: 065
     Dates: start: 20220317
  3. PRALUENT [Suspect]
     Active Substance: ALIROCUMAB
     Indication: Type IIa hyperlipidaemia
     Dosage: UNK
     Route: 065
     Dates: start: 20220317

REACTIONS (9)
  - Pyrexia [Unknown]
  - Sarcoidosis [Unknown]
  - Lymphoma [Unknown]
  - Condition aggravated [Recovering/Resolving]
  - Erythema nodosum [Unknown]
  - Pain in extremity [Recovering/Resolving]
  - Fatigue [Unknown]
  - Myalgia [Unknown]
  - Cough [Unknown]
